FAERS Safety Report 10211487 (Version 1)
Quarter: 2014Q2

REPORT INFORMATION
  Report Type: Report from Study
  Country: US (occurrence: US)
  Receive Date: 20140602
  Receipt Date: 20140602
  Transmission Date: 20141212
  Serious: Yes (Hospitalization, Other)
  Sender: FDA-Public Use
  Company Number: US-BAXTER-2014BAX028295

PATIENT
  Sex: 0

DRUGS (1)
  1. MILRINONE LACTATE IN 5% DEXTROSE INJECTION [Suspect]
     Indication: CARDIAC FAILURE
     Route: 065

REACTIONS (1)
  - Device related infection [Unknown]
